FAERS Safety Report 14987595 (Version 2)
Quarter: 2018Q2

REPORT INFORMATION
  Report Type: Report from Study
  Country: CA (occurrence: CA)
  Receive Date: 20180608
  Receipt Date: 20180611
  Transmission Date: 20180711
  Serious: Yes (Other)
  Sender: FDA-Public Use
  Company Number: PHHY2015CA116008

PATIENT
  Age: 71 Year
  Sex: Female

DRUGS (8)
  1. ZOPICLONE [Suspect]
     Active Substance: ZOPICLONE
     Indication: SLEEP DISORDER
     Dosage: 1 DF, PRN
     Route: 048
     Dates: start: 2012
  2. REACTINE [Concomitant]
     Indication: CHRONIC SPONTANEOUS URTICARIA
     Dosage: 1 DF, QD
     Route: 048
     Dates: start: 2012
  3. XOLAIR [Suspect]
     Active Substance: OMALIZUMAB
     Indication: ASTHMA
     Dosage: 300 MG, EVERY 4 WEEKS
     Route: 058
     Dates: start: 20141218, end: 20150211
  4. LORAZEPAM. [Suspect]
     Active Substance: LORAZEPAM
     Indication: SLEEP DISORDER
     Dosage: 1 DF, PRN
     Route: 048
     Dates: start: 2012
  5. XOLAIR [Suspect]
     Active Substance: OMALIZUMAB
     Indication: CHRONIC SPONTANEOUS URTICARIA
     Dosage: UNK
     Route: 058
     Dates: start: 20180201
  6. CRESTOR [Concomitant]
     Active Substance: ROSUVASTATIN CALCIUM
     Indication: DYSLIPIDAEMIA
     Dosage: 1 DF, QD
     Route: 048
     Dates: start: 2012
  7. BREO ELLIPTA [Concomitant]
     Active Substance: FLUTICASONE FUROATE\VILANTEROL TRIFENATATE
     Indication: ASTHMA
     Dosage: 1 DF, QD
     Route: 055
     Dates: start: 20170304
  8. BRICANYL [Concomitant]
     Active Substance: TERBUTALINE SULFATE
     Indication: ASTHMA
     Dosage: 2 DF, PRN
     Route: 055
     Dates: start: 2012

REACTIONS (22)
  - Transient ischaemic attack [Unknown]
  - Obstructive airways disorder [Unknown]
  - Asthma [Unknown]
  - Lower respiratory tract infection [Unknown]
  - Urticaria [Not Recovered/Not Resolved]
  - Insomnia [Unknown]
  - General physical condition abnormal [Unknown]
  - Stress [Unknown]
  - Dysphonia [Unknown]
  - Sputum discoloured [Unknown]
  - Arthralgia [Unknown]
  - Weight fluctuation [Unknown]
  - Chest discomfort [Unknown]
  - Malaise [Unknown]
  - Pneumonia [Unknown]
  - Dyspnoea [Unknown]
  - Pruritus [Unknown]
  - Pulmonary function test abnormal [Unknown]
  - Oxygen saturation decreased [Unknown]
  - Nasopharyngitis [Unknown]
  - Forced expiratory volume decreased [Unknown]
  - Productive cough [Unknown]

NARRATIVE: CASE EVENT DATE: 201704
